FAERS Safety Report 5128582-5 (Version None)
Quarter: 2006Q4

REPORT INFORMATION
  Report Type: 
  Country: None (occurrence: None)
  Receive Date: 20061017
  Receipt Date: 20061010
  Transmission Date: 20070319
  Serious: Yes (Hospitalization, Other)
  Sender: FDA-Public Use
  Company Number: GB-GLAXOSMITHKLINE-B0441883A

PATIENT
  Age: 34 Year
  Sex: Female

DRUGS (6)
  1. PAROXETINE HCL [Suspect]
     Route: 065
  2. CLOZAPINE [Suspect]
     Indication: SCHIZOPHRENIA
     Route: 048
     Dates: start: 20050516
  3. VALPROIC ACID [Suspect]
  4. AMISULPRIDE [Concomitant]
     Route: 065
  5. SCOPOLAMINE [Concomitant]
     Route: 065
  6. SENNA GLYCOSIDE [Concomitant]
     Route: 065

REACTIONS (4)
  - IDIOPATHIC THROMBOCYTOPENIC PURPURA [None]
  - SOMNOLENCE [None]
  - TACHYCARDIA [None]
  - THROMBOCYTOPENIA [None]
